FAERS Safety Report 7461201-1 (Version None)
Quarter: 2011Q2

REPORT INFORMATION
  Report Type: 
  Country: None (occurrence: None)
  Receive Date: 20110505
  Receipt Date: 20110426
  Transmission Date: 20111010
  Serious: Yes (Other)
  Sender: FDA-Public Use
  Company Number: FR-ASTRAZENECA-2011SE24543

PATIENT
  Age: 57 Year
  Sex: Male

DRUGS (2)
  1. ZESTRIL [Suspect]
     Route: 048
     Dates: start: 20071201, end: 20080501
  2. ZESTORETIC [Suspect]
     Route: 048
     Dates: start: 20080501

REACTIONS (1)
  - PULMONARY SARCOIDOSIS [None]
